FAERS Safety Report 13485839 (Version 1)
Quarter: 2017Q2

REPORT INFORMATION
  Report Type: Spontaneous
  Country: US (occurrence: US)
  Receive Date: 20170425
  Receipt Date: 20170425
  Transmission Date: 20170830
  Serious: Yes (Disabling)
  Sender: FDA-Public Use
  Company Number: None

PATIENT
  Age: 24 Year
  Sex: Female
  Weight: 58.97 kg

DRUGS (4)
  1. SKYLA [Suspect]
     Active Substance: LEVONORGESTREL
     Dates: start: 20150406
  2. T3 [Concomitant]
     Active Substance: LIOTHYRONINE SODIUM
  3. TOPICAL PROGESTERONE CREAM [Concomitant]
  4. XANAX [Concomitant]
     Active Substance: ALPRAZOLAM

REACTIONS (6)
  - Middle insomnia [None]
  - Anxiety disorder [None]
  - Weight increased [None]
  - Mood altered [None]
  - Hypothyroidism [None]
  - Palpitations [None]

NARRATIVE: CASE EVENT DATE: 20170401
